FAERS Safety Report 5103295-4 (Version None)
Quarter: 2006Q3

REPORT INFORMATION
  Report Type: 
  Country: None (occurrence: None)
  Receive Date: 20060908
  Receipt Date: 20060828
  Transmission Date: 20061208
  Serious: Yes (Other)
  Sender: FDA-Public Use
  Company Number: 2006AL002576

PATIENT
  Age: 38 Year
  Sex: Female

DRUGS (4)
  1. NIFEDIPINE CAPSULES USP, 20 MG (PEG FORMULATION)  (PUREPAC)  (NIFEDIPI [Suspect]
     Indication: TOCOLYSIS
     Dosage: 20 MG Q8H PO
     Route: 048
  2. NIFEDIPINE [Suspect]
     Indication: TOCOLYSIS
     Dosage: 30 MG X1 PO
     Route: 048
  3. BETAMETHASONE [Concomitant]
  4. NIFEDEPINE TABLETS SLOW RELEASE [Concomitant]

REACTIONS (3)
  - ATRIAL FIBRILLATION [None]
  - BLOOD POTASSIUM DECREASED [None]
  - CHEST PAIN [None]
